FAERS Safety Report 6823865-2 (Version None)
Quarter: 2010Q3

REPORT INFORMATION
  Report Type: 
  Country: None (occurrence: None)
  Receive Date: 20100708
  Receipt Date: 20060913
  Transmission Date: 20110219
  Serious: Yes (Other)
  Sender: FDA-Public Use
  Company Number: US-PFIZER INC-2006113028

PATIENT
  Sex: Female
  Weight: 80.29 kg

DRUGS (5)
  1. CHANTIX [Suspect]
     Indication: SMOKING CESSATION THERAPY
     Dates: start: 20060901
  2. LOTREL [Concomitant]
  3. TOPROL-XL [Concomitant]
  4. CYMBALTA [Concomitant]
  5. CRESTOR [Concomitant]

REACTIONS (3)
  - CORONARY ARTERY OCCLUSION [None]
  - DYSGEUSIA [None]
  - NICOTINE DEPENDENCE [None]
